FAERS Safety Report 5123547-1 (Version None)
Quarter: 2006Q4

REPORT INFORMATION
  Report Type: 
  Country: None (occurrence: None)
  Receive Date: 20061010
  Receipt Date: 20060929
  Transmission Date: 20070319
  Serious: Yes (Death, Life-Threatening, Hospitalization)
  Sender: FDA-Public Use
  Company Number: NL-JNJFOC-20051102090

PATIENT
  Sex: Female
  Weight: 43 kg

DRUGS (12)
  1. REMICADE [Suspect]
     Route: 042
  2. REMICADE [Suspect]
     Route: 042
  3. REMICADE [Suspect]
     Route: 042
  4. REMICADE [Suspect]
     Route: 042
  5. REMICADE [Suspect]
     Indication: CROHN'S DISEASE
     Route: 042
  6. AZATHIOPRINE [Concomitant]
     Indication: CROHN'S DISEASE
     Route: 065
  7. PENTASA [Concomitant]
     Indication: CROHN'S DISEASE
     Route: 065
     Dates: start: 20040707
  8. PANTOZOL [Concomitant]
     Route: 065
  9. CALCICHEW [Concomitant]
     Indication: OSTEOPOROSIS
     Route: 065
  10. ACTONEL [Concomitant]
     Indication: OSTEOPOROSIS
     Route: 065
  11. PRIMPERAN TAB [Concomitant]
     Indication: NAUSEA
     Route: 065
  12. OXYNORM [Concomitant]
     Indication: ANALGESIC EFFECT
     Route: 065

REACTIONS (1)
  - LUNG NEOPLASM MALIGNANT [None]
